FAERS Safety Report 22588518 (Version 1)
Quarter: 2023Q2

REPORT INFORMATION
  Report Type: Spontaneous
  Country: US (occurrence: US)
  Receive Date: 20230612
  Receipt Date: 20230612
  Transmission Date: 20230722
  Serious: Yes (Hospitalization, Other)
  Sender: FDA-Public Use
  Company Number: US-APOTEX-2023AP008911

PATIENT
  Age: 10 Year
  Sex: Male

DRUGS (1)
  1. BIVALIRUDIN [Suspect]
     Active Substance: BIVALIRUDIN
     Indication: Anticoagulant therapy
     Dosage: UNK
     Route: 065

REACTIONS (3)
  - Brain oedema [Recovering/Resolving]
  - Condition aggravated [Recovering/Resolving]
  - Subdural haematoma [Recovering/Resolving]
